FAERS Safety Report 25077707 (Version 1)
Quarter: 2025Q1

REPORT INFORMATION
  Report Type: Spontaneous
  Country: US (occurrence: US)
  Receive Date: 20250314
  Receipt Date: 20250314
  Transmission Date: 20250409
  Serious: Yes (Hospitalization, Other)
  Sender: NOVO NORDISK
  Company Number: US-NOVOPROD-1385853

PATIENT
  Age: 56 Year
  Sex: Male

DRUGS (2)
  1. OZEMPIC [Suspect]
     Active Substance: SEMAGLUTIDE
     Indication: Product used for unknown indication
     Dates: start: 202410
  2. OZEMPIC [Suspect]
     Active Substance: SEMAGLUTIDE
     Dates: start: 20240709

REACTIONS (10)
  - Hepatic lesion [Unknown]
  - Hepatic infection [Unknown]
  - Abdominal abscess [Unknown]
  - Intestinal ischaemia [Unknown]
  - Bile duct stenosis [Unknown]
  - Splenic vein thrombosis [Unknown]
  - Acute myocardial infarction [Unknown]
  - Pancreatitis [Unknown]
  - Pancreatitis haemorrhagic [Unknown]
  - Pancreatitis necrotising [Unknown]

NARRATIVE: CASE EVENT DATE: 20241101
